FAERS Safety Report 9668227 (Version 1)
Quarter: 2013Q4

REPORT INFORMATION
  Report Type: Report from Study
  Country: BE (occurrence: BE)
  Receive Date: 20131104
  Receipt Date: 20131104
  Transmission Date: 20140711
  Serious: Yes (Disabling)
  Sender: FDA-Public Use
  Company Number: BE-BAXTER-2013BAX042506

PATIENT
  Age: 33 Year
  Sex: Male

DRUGS (4)
  1. FEIBA 1000 U, POUDRE ET SOLVANT POUR SOLUTION INJECTABLE [Suspect]
     Indication: FACTOR VIII DEFICIENCY
     Dosage: 8000 UNITS
     Route: 051
     Dates: start: 20131025
  2. FEIBA 1000 U, POUDRE ET SOLVANT POUR SOLUTION INJECTABLE [Suspect]
     Dosage: 8000 UNITS
     Route: 051
     Dates: start: 20131026
  3. FEIBA 1000 U, POUDRE ET SOLVANT POUR SOLUTION INJECTABLE [Suspect]
     Dosage: 8000 UNITS
     Route: 051
     Dates: start: 20131027
  4. FEIBA 1000 U, POUDRE ET SOLVANT POUR SOLUTION INJECTABLE [Suspect]
     Dosage: 6000 UNITS
     Route: 051
     Dates: start: 20120609

REACTIONS (7)
  - Haemarthrosis [Not Recovered/Not Resolved]
  - Joint swelling [Not Recovered/Not Resolved]
  - Erythema [Not Recovered/Not Resolved]
  - Joint warmth [Not Recovered/Not Resolved]
  - Arthralgia [Not Recovered/Not Resolved]
  - Joint lock [Not Recovered/Not Resolved]
  - Skin infection [Not Recovered/Not Resolved]
